FAERS Safety Report 20609935 (Version 2)
Quarter: 2022Q1

REPORT INFORMATION
  Report Type: Spontaneous
  Country: HR (occurrence: HR)
  Receive Date: 20220318
  Receipt Date: 20220329
  Transmission Date: 20220423
  Serious: Yes (Death, Other)
  Sender: FDA-Public Use
  Company Number: HR-GILEAD-2022-0573562

PATIENT
  Sex: Male

DRUGS (1)
  1. EPCLUSA [Suspect]
     Active Substance: SOFOSBUVIR\VELPATASVIR
     Indication: Chronic hepatitis C
     Dosage: 1 DOSAGE FORM
     Route: 065
     Dates: start: 20220202

REACTIONS (1)
  - Death [Fatal]

NARRATIVE: CASE EVENT DATE: 20220305
